FAERS Safety Report 9254392 (Version 2)
Quarter: 2013Q2

REPORT INFORMATION
  Report Type: Spontaneous
  Country: US (occurrence: None)
  Receive Date: 20130422
  Receipt Date: 20130524
  Transmission Date: 20140414
  Serious: Yes (Other)
  Sender: FDA-Public Use
  Company Number: JPI-P-031135

PATIENT
  Age: 52 Year
  Sex: Female
  Weight: 127.01 kg

DRUGS (11)
  1. XYREM [Suspect]
     Indication: CATAPLEXY
     Route: 048
     Dates: start: 20130128
  2. METHYLPHENIDATE [Suspect]
  3. FLUTICASONE PRIPIONATE W/SALMETEROL [Concomitant]
  4. ALBUTEROL [Concomitant]
  5. DULOXETINE HYDROCHLORIDE [Concomitant]
  6. ZOLPIDEM TARTRATE [Concomitant]
  7. PRAMIPEXOLE DIHYDROCHLORIDE [Concomitant]
  8. ARMODAFINIL [Concomitant]
  9. PROTRIPTYLINE [Concomitant]
  10. CLONAZEPAM [Concomitant]
  11. HYDROCHLOROTHIAZIDE [Concomitant]

REACTIONS (7)
  - Hypertension [None]
  - Tachycardia [None]
  - Confusional state [None]
  - Hallucination [None]
  - Anxiety [None]
  - Migraine [None]
  - Crying [None]
